FAERS Safety Report 15683159 (Version 1)
Quarter: 2018Q4

REPORT INFORMATION
  Report Type: Report from Study
  Country: None (occurrence: BR)
  Receive Date: 20181204
  Receipt Date: 20181204
  Transmission Date: 20190205
  Serious: Yes (Hospitalization, Other)
  Sender: FDA-Public Use
  Company Number: BR-ABBVIE-18K-020-2572971-00

PATIENT
  Age: 68 Year
  Sex: Male
  Weight: 66 kg

DRUGS (1)
  1. HUMIRA [Suspect]
     Active Substance: ADALIMUMAB
     Indication: PSORIATIC ARTHROPATHY
     Route: 058
     Dates: start: 20170809, end: 2017

REACTIONS (8)
  - Cardiac pacemaker insertion [Unknown]
  - Influenza [Unknown]
  - Renal failure [Recovering/Resolving]
  - Hypertension [Recovering/Resolving]
  - Chronic kidney disease [Recovering/Resolving]
  - Malaise [Recovering/Resolving]
  - Gastrointestinal infection [Unknown]
  - Pneumonia [Recovered/Resolved]

NARRATIVE: CASE EVENT DATE: 201711
